FAERS Safety Report 24829608 (Version 1)
Quarter: 2025Q1

REPORT INFORMATION
  Report Type: Spontaneous
  Country: US (occurrence: US)
  Receive Date: 20250110
  Receipt Date: 20250110
  Transmission Date: 20250409
  Serious: Yes (Death, Hospitalization, Other)
  Sender: ALEMBIC
  Company Number: US-ALEMBIC PHARMACUETICALS LIMITED-2024SCAL001970

PATIENT

DRUGS (3)
  1. PACLITAXEL [Suspect]
     Active Substance: PACLITAXEL
     Indication: Hepatic cancer
     Route: 065
  2. CARBOPLATIN [Suspect]
     Active Substance: CARBOPLATIN
     Indication: Squamous cell carcinoma of lung
     Route: 065
  3. DURVALUMAB [Suspect]
     Active Substance: DURVALUMAB
     Indication: Squamous cell carcinoma of lung
     Route: 065

REACTIONS (11)
  - Oesophagomediastinal fistula [Fatal]
  - Multiple organ dysfunction syndrome [Fatal]
  - Lung abscess [Fatal]
  - Pseudomonas test positive [Fatal]
  - Dysphonia [None]
  - Dysphagia [None]
  - Odynophagia [None]
  - Abdominal pain [None]
  - Vomiting [None]
  - Proteus test positive [Fatal]
  - Pneumonia [Fatal]
